FAERS Safety Report 19039367 (Version 2)
Quarter: 2022Q4

REPORT INFORMATION
  Report Type: Report from Study
  Country: TW (occurrence: None)
  Receive Date: 20210322
  Receipt Date: 20221212
  Transmission Date: 20230112
  Serious: Yes (Hospitalization)
  Sender: FDA-Public Use
  Company Number: TW-ROCHE-2650288

PATIENT
  Age: 63 Year
  Sex: Male

DRUGS (28)
  1. ATEZOLIZUMAB [Suspect]
     Active Substance: ATEZOLIZUMAB
     Indication: Gastric cancer
     Dosage: INFUSION START TIME: 12:34, ENDED: 13:42, INFUSED OVER 1 HR 8 MIN
     Route: 042
     Dates: start: 20200713, end: 20200713
  2. TENOFOVIR ALAFENAMIDE [Concomitant]
     Active Substance: TENOFOVIR ALAFENAMIDE
     Dates: start: 20200609
  3. BUCLIZINE HCL [Concomitant]
     Dates: start: 20200703, end: 20200716
  4. HYDROCORTISONE SODIUM SUCCINATE [Concomitant]
     Active Substance: HYDROCORTISONE SODIUM SUCCINATE
     Dates: start: 20200713, end: 20200713
  5. ACETAMINOPHEN [Concomitant]
     Active Substance: ACETAMINOPHEN
     Dosage: 22:47:00
     Dates: start: 20200710, end: 20200715
  6. ALBUMIN HUMAN [Concomitant]
     Active Substance: ALBUMIN HUMAN
     Dates: start: 20200710, end: 20200712
  7. CEFAZOLIN SODIUM [Concomitant]
     Active Substance: CEFAZOLIN SODIUM
     Route: 065
     Dates: start: 20200710, end: 20200711
  8. CEFMETAZOLE SODIUM [Concomitant]
     Active Substance: CEFMETAZOLE SODIUM
     Dates: start: 20200710, end: 20200711
  9. DEXTROSE MONOHYDRATE [Concomitant]
     Active Substance: DEXTROSE MONOHYDRATE
     Route: 065
     Dates: start: 20200710, end: 20200710
  10. METOCLOPRAMIDE HYDROCHLORIDE [Concomitant]
     Active Substance: METOCLOPRAMIDE HYDROCHLORIDE
     Route: 065
     Dates: start: 20200714, end: 20200715
  11. KETOROLAC TROMETHAMINE [Concomitant]
     Active Substance: KETOROLAC TROMETHAMINE
     Route: 065
     Dates: start: 20200711, end: 20200711
  12. MORPHINE HYDROCHLORIDE [Concomitant]
     Active Substance: MORPHINE HYDROCHLORIDE
     Dates: start: 20200710, end: 20200725
  13. PANTOPRAZOLE SODIUM [Concomitant]
     Active Substance: PANTOPRAZOLE SODIUM
     Dates: start: 20200715, end: 20200729
  14. PIPERACILLIN SODIUM\TAZOBACTAM SODIUM [Concomitant]
     Active Substance: PIPERACILLIN SODIUM\TAZOBACTAM SODIUM
     Indication: Infection prophylaxis
     Dates: start: 20200711, end: 20200720
  15. TETRACYCLINE HYDROCHLORIDE [Concomitant]
     Active Substance: TETRACYCLINE HYDROCHLORIDE
     Dates: start: 20200713, end: 20200716
  16. ULTRACET [Concomitant]
     Active Substance: ACETAMINOPHEN\TRAMADOL HYDROCHLORIDE
     Dates: start: 20200712, end: 20200727
  17. OXYGEN [Concomitant]
     Active Substance: OXYGEN
     Dates: start: 20200713, end: 20200713
  18. BISACODYL [Concomitant]
     Active Substance: BISACODYL
     Indication: Haemorrhagic ascites
     Dates: start: 20200709, end: 20200717
  19. BISACODYL [Concomitant]
     Active Substance: BISACODYL
     Dates: start: 20200707, end: 20200717
  20. DIPHENHYDRAMINE HYDROCHLORIDE [Concomitant]
     Active Substance: DIPHENHYDRAMINE HYDROCHLORIDE
     Dates: start: 20200713, end: 20200716
  21. ERTAPENEM SODIUM [Concomitant]
     Active Substance: ERTAPENEM SODIUM
  22. FAT EMULSION NOS [Concomitant]
     Active Substance: EGG PHOSPHOLIPIDS\SAFFLOWER OIL\SOYBEAN OIL
  23. PHYTONADIONE [Concomitant]
     Active Substance: PHYTONADIONE
  24. DEXTROSE [Concomitant]
     Active Substance: DEXTROSE
  25. SODIUM CHLORIDE [Concomitant]
     Active Substance: SODIUM CHLORIDE
  26. DIMETHICONE [Concomitant]
     Active Substance: DIMETHICONE
     Route: 065
     Dates: start: 20200717, end: 20200727
  27. NAPROXEN [Concomitant]
     Active Substance: NAPROXEN
     Route: 065
     Dates: start: 20200711, end: 20200719
  28. TRANEXAMIC ACID [Concomitant]
     Active Substance: TRANEXAMIC ACID

REACTIONS (2)
  - Skin infection [Not Recovered/Not Resolved]
  - Soft tissue infection [Not Recovered/Not Resolved]

NARRATIVE: CASE EVENT DATE: 20200720
